FAERS Safety Report 7407842-9 (Version None)
Quarter: 2011Q2

REPORT INFORMATION
  Report Type: 
  Country: None (occurrence: None)
  Receive Date: 20110412
  Receipt Date: 20110404
  Transmission Date: 20111010
  Serious: Yes (Hospitalization)
  Sender: FDA-Public Use
  Company Number: US-US-EMD SERONO, INC.-232408J10USA

PATIENT
  Sex: Female

DRUGS (8)
  1. REBIF [Suspect]
     Indication: MULTIPLE SCLEROSIS
     Route: 058
     Dates: start: 20090817, end: 20090101
  2. KLONOPIN [Concomitant]
     Indication: MULTIPLE SCLEROSIS
     Route: 065
  3. VALIUM [Concomitant]
     Indication: INSOMNIA
     Route: 065
  4. PERCOCET [Concomitant]
     Indication: NEURALGIA
  5. ZOLPIDEM [Concomitant]
     Indication: INSOMNIA
     Route: 065
  6. ZOLOFT [Concomitant]
     Indication: DEPRESSION
     Route: 065
     Dates: start: 19990101, end: 20100301
  7. REBIF [Suspect]
     Route: 058
     Dates: start: 20100306
  8. PERCOCET [Concomitant]
     Indication: BACK PAIN
     Route: 065

REACTIONS (7)
  - APPENDICITIS [None]
  - PYREXIA [None]
  - HEAD DISCOMFORT [None]
  - DEPRESSED MOOD [None]
  - PAIN [None]
  - HYPOAESTHESIA [None]
  - ABDOMINAL DISTENSION [None]
